FAERS Safety Report 13101347 (Version 1)
Quarter: 2017Q1

REPORT INFORMATION
  Report Type: Spontaneous
  Country: US (occurrence: US)
  Receive Date: 20170110
  Receipt Date: 20170110
  Transmission Date: 20170428
  Serious: Yes (Hospitalization)
  Sender: FDA-Public Use
  Company Number: None

PATIENT
  Age: 86 Year
  Sex: Female
  Weight: 95.26 kg

DRUGS (16)
  1. ELIQUIS [Suspect]
     Active Substance: APIXABAN
     Indication: ATRIAL FIBRILLATION
     Dosage: ?          QUANTITY:1) I V ^?.IST ANY RELEVAN;?
     Route: 048
     Dates: start: 20161013, end: 20161208
  2. TIMOLOL. [Concomitant]
     Active Substance: TIMOLOL
  3. MAGNESIUM [Concomitant]
     Active Substance: MAGNESIUM
  4. VITAMIN C [Concomitant]
     Active Substance: ASCORBIC ACID
  5. VALERIAN [Concomitant]
     Active Substance: VALERIAN
  6. ELIQUIS [Suspect]
     Active Substance: APIXABAN
     Indication: THROMBOSIS PROPHYLAXIS
     Dosage: ?          QUANTITY:1) I V ^?.IST ANY RELEVAN;?
     Route: 048
     Dates: start: 20161013, end: 20161208
  7. ASPIRIN. [Concomitant]
     Active Substance: ASPIRIN
  8. VITAMIN B [Concomitant]
     Active Substance: VITAMIN B
  9. VITAMIN B COMPLEX [Concomitant]
     Active Substance: CYANOCOBALAMIN\DEXPANTHENOL\NIACINAMIDE\PYRIDOXINE HYDROCHLORIDE\RIBOFLAVIN 5^-PHOSPHATE SODIUM\THIAMINE HYDROCHLORIDE\VITAMIN B COMPLEX
  10. OMEGA-3 ACIDS [Concomitant]
     Active Substance: OMEGA-3 FATTY ACIDS
  11. DILTIAZEM. [Concomitant]
     Active Substance: DILTIAZEM
  12. LOSARTAN. [Concomitant]
     Active Substance: LOSARTAN
  13. TYLENOL [Concomitant]
     Active Substance: ACETAMINOPHEN
  14. HYDROCHLOROTHIAZIDE. [Concomitant]
     Active Substance: HYDROCHLOROTHIAZIDE
  15. LUTEIN [Concomitant]
     Active Substance: LUTEIN
  16. VITAMIN D3 [Concomitant]
     Active Substance: CHOLECALCIFEROL

REACTIONS (7)
  - Gait disturbance [None]
  - Abdominal discomfort [None]
  - Back pain [None]
  - Pain in extremity [None]
  - Flatulence [None]
  - Dyspepsia [None]
  - Decreased appetite [None]

NARRATIVE: CASE EVENT DATE: 20161106
